FAERS Safety Report 9664321 (Version 1)
Quarter: 2013Q4

REPORT INFORMATION
  Report Type: Spontaneous
  Country: IL (occurrence: IL)
  Receive Date: 20131101
  Receipt Date: 20131101
  Transmission Date: 20140711
  Serious: Yes (Other)
  Sender: FDA-Public Use
  Company Number: IL-SA-2013SA110863

PATIENT
  Age: 2 Year
  Sex: Female

DRUGS (1)
  1. DESMOPRESSIN ACETATE [Suspect]
     Indication: PRODUCT USED FOR UNKNOWN INDICATION
     Dosage: 15-18 TABLETS OF DESMOPRESSIN ACETATE OF 0.2 MG EACH
     Route: 048

REACTIONS (4)
  - Blood potassium increased [Unknown]
  - Overdose [Unknown]
  - Urine sodium increased [Unknown]
  - Blood osmolarity decreased [Unknown]
